FAERS Safety Report 9928582 (Version 2)
Quarter: 2014Q1

REPORT INFORMATION
  Report Type: Spontaneous
  Country: AU (occurrence: AU)
  Receive Date: 20140227
  Receipt Date: 20140227
  Transmission Date: 20141002
  Serious: Yes (Other)
  Sender: FDA-Public Use
  Company Number: AU-ABBVIE-13P-008-1132655-00

PATIENT
  Age: 50 Year
  Sex: Female

DRUGS (2)
  1. HUMIRA [Suspect]
     Indication: CROHN^S DISEASE
     Dates: start: 20120601, end: 20120801
  2. HUMIRA [Suspect]
     Dates: end: 20131129

REACTIONS (3)
  - Colitis [Unknown]
  - Contusion [Unknown]
  - Surgery [Unknown]
